FAERS Safety Report 23421687 (Version 1)
Quarter: 2024Q1

REPORT INFORMATION
  Report Type: Report from Study
  Country: US (occurrence: US)
  Receive Date: 20240119
  Receipt Date: 20240119
  Transmission Date: 20240410
  Serious: Yes (Other)
  Sender: FDA-Public Use
  Company Number: US-Eisai-EC-2024-157276

PATIENT
  Age: 75 Year
  Sex: Male

DRUGS (9)
  1. LENVIMA [Suspect]
     Active Substance: LENVATINIB
     Indication: Thyroid cancer
     Dosage: DOSE AND FREQUENCY UNKNOWN
     Route: 048
  2. KEYTRUDA [Suspect]
     Active Substance: PEMBROLIZUMAB
     Indication: Thyroid cancer
     Dosage: DOSE AND FREQUENCY UNKNOWN
  3. AMMONIUM LACTATE CREAME 12% [Concomitant]
     Dosage: DOSE AND FREQUENCY UNKNOWN
  4. CICLOPIROX [Concomitant]
     Active Substance: CICLOPIROX\TOCOPHEROL
     Dosage: DOSE AND FREQUENCY UNKNOWN
  5. LEVOTHYROXINE [Concomitant]
     Active Substance: LEVOTHYROXINE\LEVOTHYROXINE SODIUM
     Dosage: FREQUENCY UNKNOWN
  6. LORAZEPAM [Concomitant]
     Active Substance: LORAZEPAM
     Dosage: FREQUENCY UNKNOWN
  7. NIFEDIPINE [Concomitant]
     Active Substance: NIFEDIPINE
     Dosage: FREQUENCY UNKNOWN
  8. PANTOPRAZOLE [Concomitant]
     Active Substance: PANTOPRAZOLE
     Dosage: FREQUENCY UNKNOWN
  9. VOTRIENT [Concomitant]
     Active Substance: PAZOPANIB HYDROCHLORIDE
     Dosage: FREQUENCY UNKNOWN

REACTIONS (1)
  - Acute kidney injury [Unknown]
